FAERS Safety Report 23037263 (Version 1)
Quarter: 2023Q4

REPORT INFORMATION
  Report Type: Spontaneous
  Country: CA (occurrence: CA)
  Receive Date: 20231006
  Receipt Date: 20231006
  Transmission Date: 20240110
  Serious: Yes (Other)
  Sender: FDA-Public Use
  Company Number: CA-STRIDES ARCOLAB LIMITED-2023SP015042

PATIENT
  Age: 9 Year
  Sex: Male

DRUGS (15)
  1. PROPRANOLOL [Suspect]
     Active Substance: PROPRANOLOL HYDROCHLORIDE
     Indication: Intellectual disability
     Dosage: UNK
     Route: 065
  2. PROPRANOLOL [Suspect]
     Active Substance: PROPRANOLOL HYDROCHLORIDE
     Indication: Autism spectrum disorder
  3. MELATONIN [Suspect]
     Active Substance: MELATONIN
     Indication: Sleep disorder
     Dosage: 10 MILLIGRAM
     Route: 065
  4. HALOPERIDOL [Suspect]
     Active Substance: HALOPERIDOL
     Indication: Intellectual disability
     Dosage: 0.5 MILLIGRAM
     Route: 065
  5. HALOPERIDOL [Suspect]
     Active Substance: HALOPERIDOL
     Indication: Autism spectrum disorder
     Dosage: UNK; RESTARTED
     Route: 065
  6. HALOPERIDOL [Suspect]
     Active Substance: HALOPERIDOL
     Indication: Kleefstra syndrome
     Dosage: UNK; ADJUSTED
     Route: 065
  7. HALOPERIDOL [Suspect]
     Active Substance: HALOPERIDOL
     Dosage: UNK; CHANGED FROM THE MORNING TO THE EVENING
     Route: 065
  8. CLONIDINE [Suspect]
     Active Substance: CLONIDINE
     Indication: Intellectual disability
     Dosage: UNK
     Route: 065
  9. CLONIDINE [Suspect]
     Active Substance: CLONIDINE
     Indication: Autism spectrum disorder
  10. RISPERIDONE [Suspect]
     Active Substance: RISPERIDONE
     Indication: Intellectual disability
     Dosage: UNK; INITIAL DOSE NOT STATED
     Route: 065
  11. RISPERIDONE [Suspect]
     Active Substance: RISPERIDONE
     Indication: Autism spectrum disorder
     Dosage: 1 MILLIGRAM; REDUCED BY ONE-THIRD TO 1MG AND SUBSEQUENTLY TO 0.5MG
     Route: 065
  12. RISPERIDONE [Suspect]
     Active Substance: RISPERIDONE
     Indication: Kleefstra syndrome
     Dosage: 0.5 MILLIGRAM; REDUCED BY ONE-THIRD TO 1MG AND SUBSEQUENTLY TO 0.5MG
     Route: 065
  13. RISPERIDONE [Suspect]
     Active Substance: RISPERIDONE
     Dosage: UNK; ADJUSTED
     Route: 065
  14. RISPERIDONE [Suspect]
     Active Substance: RISPERIDONE
     Dosage: UNK; INCREASED
     Route: 065
  15. RISPERIDONE [Suspect]
     Active Substance: RISPERIDONE
     Dosage: UNK; CHANGED FROM THE MORNING TO THE EVENING
     Route: 065

REACTIONS (4)
  - Weight increased [Recovered/Resolved]
  - Drug ineffective [Unknown]
  - Lethargy [Unknown]
  - Off label use [Unknown]
